FAERS Safety Report 5841065-X (Version None)
Quarter: 2008Q3

REPORT INFORMATION
  Report Type: 
  Country: None (occurrence: None)
  Receive Date: 20080811
  Receipt Date: 20080731
  Transmission Date: 20090109
  Serious: Yes (Other)
  Sender: FDA-Public Use
  Company Number: GB-ELI_LILLY_AND_COMPANY-GB200807000634

PATIENT
  Age: 11 Year
  Sex: Female
  Weight: 42 kg

DRUGS (2)
  1. HUMULIN 70/30 [Suspect]
     Dosage: UNK, UNK
     Route: 058
     Dates: start: 20080509, end: 20080627
  2. HUMALOG [Suspect]
     Dosage: 310 IU, UNK
     Route: 058
     Dates: start: 20080627

REACTIONS (3)
  - EMOTIONAL DISTRESS [None]
  - ERYTHEMA [None]
  - INJECTION SITE SWELLING [None]
